FAERS Safety Report 17186460 (Version 1)
Quarter: 2019Q4

REPORT INFORMATION
  Report Type: Spontaneous
  Country: FR (occurrence: FR)
  Receive Date: 20191220
  Receipt Date: 20191220
  Transmission Date: 20200122
  Serious: Yes (Hospitalization)
  Sender: FDA-Public Use
  Company Number: FR-MYLANLABS-2019M1126564

PATIENT
  Age: 74 Year
  Sex: Male

DRUGS (3)
  1. OMEPRAZOLE. [Suspect]
     Active Substance: OMEPRAZOLE
     Indication: BACK PAIN
     Dosage: 20 MILLIGRAM, QD
     Route: 048
     Dates: start: 20190719, end: 20190724
  2. LAMALINE [CAFFEINE/OPIUM/PARACETAMOL] [Suspect]
     Active Substance: ACETAMINOPHEN\CAFFEINE\OPIUM
     Indication: BACK PAIN
     Dosage: UNK
     Route: 048
     Dates: start: 20190719, end: 20190724
  3. IBUPROFEN. [Suspect]
     Active Substance: IBUPROFEN
     Indication: BACK PAIN
     Dosage: UNK
     Route: 048
     Dates: start: 20190719, end: 20190724

REACTIONS (1)
  - Inappropriate antidiuretic hormone secretion [Recovering/Resolving]

NARRATIVE: CASE EVENT DATE: 201907
